FAERS Safety Report 19007199 (Version 7)
Quarter: 2021Q3

REPORT INFORMATION
  Report Type: Report from Study
  Country: KR (occurrence: KR)
  Receive Date: 20210315
  Receipt Date: 20210916
  Transmission Date: 20211014
  Serious: Yes (Hospitalization)
  Sender: FDA-Public Use
  Company Number: KR-ROCHE-2772837

PATIENT
  Age: 56 Year
  Sex: Female
  Weight: 64.7 kg

DRUGS (11)
  1. BELVARAFENIB [Suspect]
     Active Substance: BELVARAFENIB
     Indication: MALIGNANT MELANOMA
     Dosage: ON 29/JAN/2021, THE PATIENT RECEIVED MOST RECENT DOSE OF HM95573 PRIOR TO EVENT.
     Route: 048
     Dates: start: 20201216, end: 20210208
  2. ENTELON [Concomitant]
     Indication: ARTHRALGIA
     Route: 048
     Dates: start: 20190318
  3. COBIMETINIB. [Suspect]
     Active Substance: COBIMETINIB
     Route: 048
     Dates: start: 20210324, end: 20210611
  4. SYNTHROID [Concomitant]
     Active Substance: LEVOTHYROXINE SODIUM
     Indication: HYPOTHYROIDISM
     Dates: start: 20190531, end: 202101
  5. COBIMETINIB. [Suspect]
     Active Substance: COBIMETINIB
     Indication: MALIGNANT MELANOMA
     Dosage: ON 29/JAN/2021, THE PATIENT RECEIVED MOST RECENT DOSE OF COBIMETINIB PRIOR TO SAE.
     Route: 048
     Dates: start: 20201216, end: 20210131
  6. CLEOCIN T [Concomitant]
     Active Substance: CLINDAMYCIN PHOSPHATE
     Indication: DERMATITIS ACNEIFORM
     Route: 061
     Dates: start: 20201230
  7. LACTICARE ZEMAGIS [Concomitant]
     Indication: DERMATITIS ACNEIFORM
     Route: 061
     Dates: start: 20201230
  8. ADIPAM (SOUTH KOREA) [Concomitant]
     Indication: DERMATITIS ACNEIFORM
     Route: 048
     Dates: start: 20201230
  9. TACENOL ER [Concomitant]
     Indication: HEADACHE
     Route: 048
     Dates: start: 20201216
  10. EBASTEL [Concomitant]
     Active Substance: EBASTINE
     Indication: DERMATITIS ACNEIFORM
     Route: 048
     Dates: start: 20201230
  11. BELVARAFENIB [Suspect]
     Active Substance: BELVARAFENIB
     Route: 048
     Dates: start: 20210324, end: 20210611

REACTIONS (3)
  - Herpes zoster [Not Recovered/Not Resolved]
  - Pruritus [Recovered/Resolved]
  - Dermatitis acneiform [Recovered/Resolved]

NARRATIVE: CASE EVENT DATE: 20210129
